FAERS Safety Report 8481732-5 (Version None)
Quarter: 2012Q3

REPORT INFORMATION
  Report Type: 
  Country: None (occurrence: None)
  Receive Date: 20120702
  Receipt Date: 20120628
  Transmission Date: 20120928
  Serious: Yes (Other)
  Sender: FDA-Public Use
  Company Number: US-BAYER-2012-064444

PATIENT
  Age: 50 Year
  Sex: Male

DRUGS (2)
  1. INTERFERON BETA-1B [Suspect]
     Indication: RELAPSING-REMITTING MULTIPLE SCLEROSIS
     Dosage: 8 MIU, QOD
     Route: 058
     Dates: start: 20120305
  2. TOPAMAX [Concomitant]

REACTIONS (4)
  - FEELING COLD [None]
  - CHILLS [None]
  - HEADACHE [None]
  - LIPIDS INCREASED [None]
